FAERS Safety Report 15403033 (Version 2)
Quarter: 2018Q4

REPORT INFORMATION
  Report Type: Spontaneous
  Country: CA (occurrence: CA)
  Receive Date: 20180919
  Receipt Date: 20181122
  Transmission Date: 20190204
  Serious: Yes (Death, Hospitalization, Other)
  Sender: FDA-Public Use
  Company Number: CA-PFIZER INC-2018320934

PATIENT
  Age: 67 Year
  Sex: Female

DRUGS (3)
  1. PLAQUENIL [Concomitant]
     Active Substance: HYDROXYCHLOROQUINE SULFATE
     Indication: PSORIATIC ARTHROPATHY
     Dosage: 400 MG, DAILY
     Route: 048
     Dates: start: 2013, end: 201807
  2. XELJANZ [Suspect]
     Active Substance: TOFACITINIB CITRATE
     Indication: PSORIATIC ARTHROPATHY
     Dosage: 5 MG, 2X/DAY
     Route: 048
     Dates: start: 20180614, end: 20180719
  3. METHOTREXATE SODIUM. [Suspect]
     Active Substance: METHOTREXATE SODIUM
     Indication: PSORIATIC ARTHROPATHY
     Dosage: 25 MG, UNK
     Dates: start: 2013, end: 201807

REACTIONS (7)
  - Enterococcal sepsis [Fatal]
  - Bone marrow failure [Fatal]
  - Pancytopenia [Fatal]
  - Febrile neutropenia [Not Recovered/Not Resolved]
  - Abscess [Not Recovered/Not Resolved]
  - Pneumonia [Not Recovered/Not Resolved]
  - Genitourinary symptom [Not Recovered/Not Resolved]

NARRATIVE: CASE EVENT DATE: 201807
